FAERS Safety Report 4360613-2 (Version None)
Quarter: 2004Q2

REPORT INFORMATION
  Report Type: 
  Country: None (occurrence: None)
  Receive Date: 20040519
  Receipt Date: 20040510
  Transmission Date: 20050107
  Serious: Yes (Death)
  Sender: FDA-Public Use
  Company Number: LB-MERCK-0405USA00893

PATIENT
  Age: 66 Year
  Sex: Male

DRUGS (5)
  1. ASPIRIN [Concomitant]
     Route: 048
     Dates: start: 20040106, end: 20040107
  2. LOVENOX [Concomitant]
     Route: 042
     Dates: start: 20040106, end: 20040107
  3. LASIX [Concomitant]
     Route: 042
     Dates: start: 20040106, end: 20040107
  4. CORVASAL [Concomitant]
     Route: 048
     Dates: start: 20040106, end: 20040107
  5. ZOCOR [Suspect]
     Route: 048
     Dates: start: 20040106, end: 20040107

REACTIONS (2)
  - ISCHAEMIC CARDIOMYOPATHY [None]
  - MYOCARDIAL INFARCTION [None]
